FAERS Safety Report 7503262-7 (Version None)
Quarter: 2011Q2

REPORT INFORMATION
  Report Type: 
  Country: None (occurrence: None)
  Receive Date: 20110525
  Receipt Date: 20110309
  Transmission Date: 20111010
  Serious: No
  Sender: FDA-Public Use
  Company Number: A0917381A

PATIENT
  Sex: Male

DRUGS (2)
  1. BACTROBAN [Suspect]
     Indication: ACNE
     Dosage: 1APP THREE TIMES PER DAY
     Route: 061
     Dates: start: 20110201, end: 20110201
  2. NO CONCURRENT MEDICATION [Concomitant]

REACTIONS (2)
  - RASH [None]
  - DRUG INEFFECTIVE [None]
